FAERS Safety Report 13952797 (Version 1)
Quarter: 2017Q3

REPORT INFORMATION
  Report Type: Spontaneous
  Country: US (occurrence: US)
  Receive Date: 20170911
  Receipt Date: 20170911
  Transmission Date: 20171128
  Serious: No
  Sender: FDA-Public Use
  Company Number: US-TEVA-781769ACC

PATIENT
  Sex: Female

DRUGS (2)
  1. FENTANYL. [Suspect]
     Active Substance: FENTANYL
     Indication: BACK PAIN
     Dosage: 25MCG 5
     Route: 065
     Dates: start: 2014
  2. FENTANYL. [Suspect]
     Active Substance: FENTANYL
     Indication: ARTHRALGIA

REACTIONS (3)
  - Drug ineffective [Unknown]
  - Nausea [Unknown]
  - Vomiting [Unknown]

NARRATIVE: CASE EVENT DATE: 2014
